FAERS Safety Report 10726274 (Version 1)
Quarter: 2015Q1

REPORT INFORMATION
  Report Type: Spontaneous
  Country: US (occurrence: None)
  Receive Date: 20150120
  Receipt Date: 20150120
  Transmission Date: 20150721
  Serious: Yes (Other)
  Sender: FDA-Public Use
  Company Number: None

PATIENT
  Age: 68 Year
  Sex: Male
  Weight: 106.6 kg

DRUGS (1)
  1. XTANDI [Suspect]
     Active Substance: ENZALUTAMIDE
     Indication: PROSTATE CANCER
     Dosage: STRENGTH: 160MG, DOSE FORM: ORAL, FREQUENCY: QD, ROUTE: ORAL 047
     Route: 048
     Dates: start: 20140926

REACTIONS (3)
  - Weight increased [None]
  - Joint swelling [None]
  - Muscle spasms [None]

NARRATIVE: CASE EVENT DATE: 20150108
